FAERS Safety Report 9835024 (Version 1)
Quarter: 2014Q1

REPORT INFORMATION
  Report Type: Spontaneous
  Country: US (occurrence: US)
  Receive Date: 20140122
  Receipt Date: 20140122
  Transmission Date: 20141002
  Serious: No
  Sender: FDA-Public Use
  Company Number: US-ACORDA-ACO_21594_2011

PATIENT
  Sex: Female

DRUGS (5)
  1. AMPYRA [Suspect]
     Indication: PRODUCT USED FOR UNKNOWN INDICATION
     Dosage: 10 MG, BID
     Dates: start: 20101130
  2. TIZANIDINE [Suspect]
  3. REBIF [Concomitant]
  4. CYMBALTA [Concomitant]
  5. AMITRIPTYLINE [Concomitant]

REACTIONS (1)
  - Breakthrough pain [Unknown]
